FAERS Safety Report 6882150-3 (Version None)
Quarter: 2010Q3

REPORT INFORMATION
  Report Type: 
  Country: None (occurrence: None)
  Receive Date: 20100727
  Receipt Date: 20100727
  Transmission Date: 20110219
  Serious: Yes (Other)
  Sender: FDA-Public Use
  Company Number: None

PATIENT
  Age: 31 Year
  Sex: Female
  Weight: 76.2043 kg

DRUGS (1)
  1. MIRENA [Suspect]
     Indication: CONTRACEPTION
     Dates: start: 20100719, end: 20100726

REACTIONS (8)
  - ANGER [None]
  - ANXIETY [None]
  - DIZZINESS [None]
  - FEAR [None]
  - NAUSEA [None]
  - PALLOR [None]
  - PANIC ATTACK [None]
  - VOMITING [None]
